FAERS Safety Report 9405617 (Version 1)
Quarter: 2013Q3

REPORT INFORMATION
  Report Type: Spontaneous
  Country: FR (occurrence: FR)
  Receive Date: 20130717
  Receipt Date: 20130717
  Transmission Date: 20140515
  Serious: Yes (Hospitalization)
  Sender: FDA-Public Use
  Company Number: FR-B.I. PHARMACEUTICALS,INC./RIDGEFIELD-2013-FF-01845FF

PATIENT
  Age: 55 Year
  Sex: Female

DRUGS (5)
  1. ATROVENT [Suspect]
     Route: 002
  2. DEXTROMETHORPHAN HYDROBROMIDE [Suspect]
     Route: 048
  3. BRICANYL [Suspect]
     Route: 002
  4. TEMERIT [Suspect]
     Dosage: 0.5 MG
     Route: 048
  5. ALDACTONE [Suspect]
     Route: 048

REACTIONS (2)
  - Drug hypersensitivity [Recovered/Resolved]
  - Erythema [Recovered/Resolved]
